FAERS Safety Report 4617475-5 (Version None)
Quarter: 2005Q1

REPORT INFORMATION
  Report Type: 
  Country: None (occurrence: None)
  Receive Date: 20050324
  Receipt Date: 20050215
  Transmission Date: 20050727
  Serious: Yes (Life-Threatening, Other)
  Sender: FDA-Public Use
  Company Number: US-BRISTOL-MYERS SQUIBB COMPANY-12862611

PATIENT
  Age: 38 Year
  Sex: Female

DRUGS (6)
  1. SUSTIVA [Suspect]
     Indication: HIV INFECTION
     Route: 048
     Dates: start: 20041129
  2. MIDAZOLAM [Interacting]
     Indication: ANAESTHESIA
     Route: 042
     Dates: start: 20041210, end: 20041211
  3. KALETRA [Concomitant]
  4. VIREAD [Concomitant]
  5. DOPAMINE [Concomitant]
  6. DOBUTAMINE HCL [Concomitant]

REACTIONS (2)
  - CARDIAC ARREST [None]
  - DRUG INTERACTION [None]
